FAERS Safety Report 8123691-0 (Version None)
Quarter: 2012Q1

REPORT INFORMATION
  Report Type: 
  Country: None (occurrence: None)
  Receive Date: 20120208
  Receipt Date: 20120206
  Transmission Date: 20120608
  Serious: Yes (Hospitalization, Other)
  Sender: FDA-Public Use
  Company Number: JP-ABBOTT-10P-087-0693418-00

PATIENT
  Sex: Male
  Weight: 42 kg

DRUGS (14)
  1. MESALAMINE [Concomitant]
     Dates: start: 20101229
  2. NATURAL ALUMINUM SILICATE [Concomitant]
     Indication: CROHN'S DISEASE
     Dosage: 2 GRAM DAILY
     Route: 048
  3. BIFIDOBACTERIUM [Concomitant]
     Indication: CROHN'S DISEASE
     Dosage: 2 GRAM DAILY
     Route: 048
  4. HUMIRA [Suspect]
     Route: 058
     Dates: start: 20110103
  5. POTASSIUM L-ASPARTATE [Concomitant]
     Dosage: 10MEQ/DAY
     Dates: end: 20110107
  6. ENTERAL NUTRITION THERAPY [Concomitant]
     Indication: CROHN'S DISEASE
  7. HUMIRA [Suspect]
     Route: 058
     Dates: start: 20101220, end: 20101220
  8. AZATHIOPRINE [Concomitant]
     Indication: CROHN'S DISEASE
     Route: 048
  9. POTASSIUM L-ASPARTATE [Concomitant]
     Indication: CROHN'S DISEASE
     Route: 048
  10. ALBUMIN TANNATE [Concomitant]
     Indication: CROHN'S DISEASE
     Dosage: 2 GRAM DAILY
     Route: 048
  11. HUMIRA [Suspect]
     Indication: CROHN'S DISEASE
     Route: 058
     Dates: start: 20101206, end: 20101206
  12. MESALAMINE [Concomitant]
     Indication: CROHN'S DISEASE
     Route: 048
     Dates: start: 20101108, end: 20101228
  13. NIZATIDINE [Concomitant]
     Indication: CROHN'S DISEASE
     Route: 048
  14. LOPERAMIDE HCL [Concomitant]
     Indication: CROHN'S DISEASE
     Route: 048

REACTIONS (4)
  - BLOOD POTASSIUM DECREASED [None]
  - BLOOD MAGNESIUM DECREASED [None]
  - HYPOCALCAEMIA [None]
  - TETANY [None]
